FAERS Safety Report 20529654 (Version 1)
Quarter: 2022Q1

REPORT INFORMATION
  Report Type: Spontaneous
  Country: BR (occurrence: BR)
  Receive Date: 20220301
  Receipt Date: 20220301
  Transmission Date: 20220423
  Serious: Yes (Hospitalization, Other)
  Sender: FDA-Public Use
  Company Number: BR-JNJFOC-20220248960

PATIENT
  Sex: Female
  Weight: 46 kg

DRUGS (4)
  1. INFLIXIMAB [Suspect]
     Active Substance: INFLIXIMAB
     Indication: Colitis
     Route: 042
     Dates: start: 2014
  2. PREDNISONE [Concomitant]
     Active Substance: PREDNISONE
     Indication: Product used for unknown indication
     Route: 065
  3. SULFASALAZINE [Concomitant]
     Active Substance: SULFASALAZINE
     Indication: Product used for unknown indication
     Route: 065
  4. AZATHIOPRINE [Concomitant]
     Active Substance: AZATHIOPRINE
     Indication: Product used for unknown indication
     Route: 065

REACTIONS (2)
  - Colitis [Unknown]
  - Malnutrition [Unknown]

NARRATIVE: CASE EVENT DATE: 20190101
